FAERS Safety Report 4736628-9 (Version None)
Quarter: 2005Q3

REPORT INFORMATION
  Report Type: 
  Country: None (occurrence: None)
  Receive Date: 20050804
  Receipt Date: 20050722
  Transmission Date: 20060218
  Serious: Yes (Hospitalization)
  Sender: FDA-Public Use
  Company Number: 203800

PATIENT
  Age: 66 Year
  Sex: Female

DRUGS (16)
  1. AVONEX [Suspect]
     Indication: MULTIPLE SCLEROSIS
     Dosage: 30 UG QW IM
     Route: 030
     Dates: start: 20020422
  2. AVONEX [Suspect]
     Indication: MULTIPLE SCLEROSIS
     Dosage: 30 UG QW IM
     Route: 030
     Dates: start: 20030818
  3. ZANAFLEX [Concomitant]
  4. BACLOFEN [Concomitant]
  5. NEURONTIN [Concomitant]
  6. LASIX [Concomitant]
  7. BETHANECHOL [Concomitant]
  8. HYDROXYZINE [Concomitant]
  9. CEPHALEXIN [Concomitant]
  10. DARVOCET [Concomitant]
  11. NIACINAMIDE [Concomitant]
  12. INSULIN [Concomitant]
  13. MULTI-VITAMINS [Concomitant]
  14. CALCIUM GLUCONATE [Concomitant]
  15. SILVADENE [Concomitant]
  16. PREDNISONE [Concomitant]

REACTIONS (7)
  - BACTERAEMIA [None]
  - BLISTER [None]
  - BLOOD BLISTER [None]
  - CUSHINGOID [None]
  - OVERWEIGHT [None]
  - PRURITUS [None]
  - TONGUE BLISTERING [None]
